FAERS Safety Report 8160398-8 (Version None)
Quarter: 2012Q1

REPORT INFORMATION
  Report Type: 
  Country: None (occurrence: None)
  Receive Date: 20120223
  Receipt Date: 20120213
  Transmission Date: 20120608
  Serious: Yes (Life-Threatening)
  Sender: FDA-Public Use
  Company Number: JP-AMGEN-JPNSP2011059808

PATIENT
  Age: 73 Year
  Sex: Male
  Weight: 72 kg

DRUGS (14)
  1. ROMIPLOSTIM - KHK [Suspect]
     Dosage: 1 MG/KG, Q2WK
     Route: 058
     Dates: start: 20110922, end: 20111021
  2. MADOPAR [Concomitant]
     Indication: PARKINSON'S DISEASE
     Route: 048
  3. ALLOPURINOL [Concomitant]
     Indication: HYPERURICAEMIA
     Dosage: UNCERTAINTY
     Route: 048
  4. ALENDRONATE SODIUM [Concomitant]
     Indication: PROPHYLAXIS
     Dosage: UNK
     Route: 048
  5. ROMIPLOSTIM - KHK [Suspect]
     Indication: IDIOPATHIC THROMBOCYTOPENIC PURPURA
     Dosage: 1 MG/KG, QD
     Route: 058
     Dates: start: 20110805
  6. RABEPRAZOLE SODIUM [Concomitant]
     Indication: PROPHYLAXIS
     Dosage: UNK
     Route: 048
  7. ROMIPLOSTIM - KHK [Suspect]
     Dosage: 2 MG/KG, QWK
     Route: 058
     Dates: start: 20110812, end: 20110826
  8. MICARDIS [Concomitant]
     Dosage: 40 MG, QD
     Route: 048
  9. ROMIPLOSTIM - KHK [Suspect]
     Dosage: 1 MG/KG, Q2WK
     Route: 058
     Dates: start: 20111228, end: 20120127
  10. ROMIPLOSTIM - KHK [Suspect]
     Dosage: 1 MG/KG, QWK
     Route: 058
     Dates: start: 20110902, end: 20110909
  11. PREDNISOLONE [Concomitant]
     Indication: IDIOPATHIC THROMBOCYTOPENIC PURPURA
     Dosage: UNK UNK, QD
     Route: 048
     Dates: start: 20110714
  12. LENDEM [Concomitant]
     Indication: INSOMNIA
     Dosage: UNK
     Route: 048
  13. ROMIPLOSTIM - KHK [Suspect]
     Dosage: 1 MG/KG, QD
     Route: 058
     Dates: start: 20111125, end: 20111125
  14. ROMIPLOSTIM - KHK [Suspect]
     Dosage: 1 MG/KG, QD
     Route: 058
     Dates: start: 20111209, end: 20111209

REACTIONS (2)
  - PULMONARY EMBOLISM [None]
  - DEEP VEIN THROMBOSIS [None]
